FAERS Safety Report 9189299 (Version 1)
Quarter: 2013Q2

REPORT INFORMATION
  Report Type: Spontaneous
  Country: US (occurrence: None)
  Receive Date: 20130321
  Receipt Date: 20130321
  Transmission Date: 20140414
  Serious: Yes (Hospitalization)
  Sender: FDA-Public Use
  Company Number: None

PATIENT
  Age: 54 Year
  Sex: Female
  Weight: 63.5 kg

DRUGS (7)
  1. DOVITINIB [Suspect]
     Indication: ADENOID CYSTIC CARCINOMA
     Dosage: 500MGX5DAYS, 0MGX2DAYS
  2. ACTIQ [Concomitant]
  3. SYNTHROID [Concomitant]
  4. ATIVAN [Concomitant]
  5. DURAGESIC [Concomitant]
  6. NEURONTIN [Concomitant]
  7. CLINDAGEL [Concomitant]

REACTIONS (2)
  - Spinal pain [None]
  - Metastases to spine [None]
